FAERS Safety Report 8292364-6 (Version None)
Quarter: 2012Q2

REPORT INFORMATION
  Report Type: 
  Country: None (occurrence: None)
  Receive Date: 20120417
  Receipt Date: 20120131
  Transmission Date: 20120825
  Serious: No
  Sender: FDA-Public Use
  Company Number: US-BAUSCH-2012BL000621

PATIENT
  Sex: Female

DRUGS (1)
  1. FLUNISOLIDE [Suspect]
     Indication: HYPERSENSITIVITY
     Route: 049

REACTIONS (1)
  - DRUG INEFFECTIVE [None]
